FAERS Safety Report 8111932 (Version 3)
Quarter: 2013Q2

REPORT INFORMATION
  Report Type: Spontaneous
  Country: US (occurrence: US)
  Receive Date: 20110829
  Receipt Date: 20130614
  Transmission Date: 20140414
  Serious: Yes (Death, Hospitalization)
  Sender: FDA-Public Use
  Company Number: US-ASTRAZENECA-2010SE45831

PATIENT
  Age: 48 Year
  Sex: Female
  Weight: 88.5 kg

DRUGS (2)
  1. NEXIUM [Suspect]
     Route: 048
  2. LYRICA [Suspect]
     Indication: NEUROPATHY PERIPHERAL
     Route: 065

REACTIONS (7)
  - Myocardial infarction [Fatal]
  - Pneumonia [Unknown]
  - Aphagia [Unknown]
  - Gastrooesophageal reflux disease [Unknown]
  - Nasopharyngitis [Unknown]
  - Malaise [Unknown]
  - Drug dose omission [Unknown]
